FAERS Safety Report 10791953 (Version 2)
Quarter: 2015Q1

REPORT INFORMATION
  Report Type: Spontaneous
  Country: JP (occurrence: JP)
  Receive Date: 20150213
  Receipt Date: 20150303
  Transmission Date: 20150721
  Serious: Yes (Other)
  Sender: FDA-Public Use
  Company Number: JP-ROCHE-1537042

PATIENT
  Age: 82 Year
  Sex: Male

DRUGS (6)
  1. LOXONIN [Concomitant]
     Active Substance: LOXOPROFEN SODIUM
     Indication: OSTEOARTHRITIS
     Route: 061
     Dates: start: 20140819, end: 20150120
  2. EDIROL [Suspect]
     Active Substance: ELDECALCITOL
     Indication: OSTEOPOROSIS
     Route: 048
     Dates: start: 20140906, end: 20150105
  3. ELCITONIN [Suspect]
     Active Substance: ELCATONIN
     Indication: OSTEOPOROSIS
     Route: 030
     Dates: start: 20140821, end: 20140916
  4. BONVIVA [Suspect]
     Active Substance: IBANDRONATE SODIUM
     Indication: OSTEOPOROSIS
     Dosage: ONLY THREE TIMES
     Route: 042
     Dates: start: 20140819, end: 20141118
  5. DENOSUMAB [Suspect]
     Active Substance: DENOSUMAB
     Indication: OSTEOPOROSIS
     Dosage: ONLY ONCE?REPORTED AS PRALIA
     Route: 058
     Dates: start: 20141203
  6. LYRICA [Concomitant]
     Active Substance: PREGABALIN
     Indication: HYPOAESTHESIA
     Route: 048
     Dates: start: 20140819, end: 20140916

REACTIONS (3)
  - Loss of consciousness [Recovered/Resolved]
  - Hypercalcaemia [Recovering/Resolving]
  - Renal impairment [Unknown]

NARRATIVE: CASE EVENT DATE: 20150118
